FAERS Safety Report 19696778 (Version 1)
Quarter: 2021Q3

REPORT INFORMATION
  Report Type: Spontaneous
  Country: US (occurrence: US)
  Receive Date: 20210813
  Receipt Date: 20210813
  Transmission Date: 20211014
  Serious: No
  Sender: FDA-Public Use
  Company Number: None

PATIENT
  Age: 52 Year
  Sex: Female

DRUGS (1)
  1. DIMETHYL FUM DR CAP 240MG [Suspect]
     Active Substance: DIMETHYL FUMARATE
     Route: 048
     Dates: start: 202107

REACTIONS (5)
  - Eye pain [None]
  - Pain [None]
  - Muscle spasms [None]
  - Headache [None]
  - Therapy interrupted [None]

NARRATIVE: CASE EVENT DATE: 20210801
